FAERS Safety Report 20814013 (Version 1)
Quarter: 2022Q2

REPORT INFORMATION
  Report Type: Report from Study
  Country: ES (occurrence: ES)
  Receive Date: 20220511
  Receipt Date: 20220511
  Transmission Date: 20220721
  Serious: Yes (Other)
  Sender: FDA-Public Use
  Company Number: ES-GLAXOSMITHKLINE-ES2022EME074765

PATIENT
  Sex: Female

DRUGS (1)
  1. NIRAPARIB [Suspect]
     Active Substance: NIRAPARIB
     Indication: Ovarian neoplasm
     Dosage: 100 MG, QD
     Route: 048
     Dates: start: 20211021

REACTIONS (1)
  - Malignant neoplasm progression [Not Recovered/Not Resolved]
